FAERS Safety Report 7392773-3 (Version None)
Quarter: 2011Q2

REPORT INFORMATION
  Report Type: 
  Country: None (occurrence: None)
  Receive Date: 20110404
  Receipt Date: 20110331
  Transmission Date: 20111010
  Serious: Yes (Life-Threatening)
  Sender: FDA-Public Use
  Company Number: JP-ASTRAZENECA-2011SE18459

PATIENT
  Age: 40 Year
  Sex: Female

DRUGS (2)
  1. XYLOCAINE [Suspect]
     Route: 065
  2. DIPRIVAN [Suspect]
     Route: 042

REACTIONS (2)
  - CONVULSION [None]
  - CARDIO-RESPIRATORY ARREST [None]
